FAERS Safety Report 7693149-1 (Version None)
Quarter: 2011Q3

REPORT INFORMATION
  Report Type: 
  Country: None (occurrence: None)
  Receive Date: 20110819
  Receipt Date: 20110816
  Transmission Date: 20111222
  Serious: Yes (Disabling)
  Sender: FDA-Public Use
  Company Number: GB-PFIZER INC-2011189129

PATIENT
  Age: 54 Year
  Sex: Male
  Weight: 103.8 kg

DRUGS (4)
  1. SERTRALINE HYDROCHLORIDE [Suspect]
     Dosage: UNK
     Dates: start: 20110803, end: 20110801
  2. SERTRALINE [Concomitant]
     Dosage: UNK
     Dates: start: 20110420, end: 20110518
  3. SERTRALINE [Concomitant]
     Dosage: UNK
     Dates: start: 20110801
  4. SERTRALINE [Concomitant]
     Dosage: UNK
     Dates: start: 20110523, end: 20110711

REACTIONS (4)
  - DIZZINESS [None]
  - PAIN [None]
  - SOMNOLENCE [None]
  - PRODUCT SUBSTITUTION ISSUE [None]
